FAERS Safety Report 7257825-7 (Version None)
Quarter: 2011Q1

REPORT INFORMATION
  Report Type: 
  Country: None (occurrence: None)
  Receive Date: 20110129
  Receipt Date: 20100503
  Transmission Date: 20110831
  Serious: No
  Sender: FDA-Public Use
  Company Number: US-ABBOTT-10P-163-0642608-00

PATIENT
  Age: 69 Year
  Sex: Female

DRUGS (7)
  1. HUMIRA [Suspect]
     Indication: PSORIASIS
     Dates: start: 20090201
  2. JANUVIA [Concomitant]
     Indication: DIABETES MELLITUS
  3. LANTUS [Concomitant]
     Indication: DIABETES MELLITUS
     Dosage: 50 UNITS,1 IN THE MORNING + 1 AT NIGHT
  4. ASPIRIN [Concomitant]
     Indication: CARDIAC DISORDER
  5. METOPROLOL [Concomitant]
  6. ZOLPIDEM [Concomitant]
     Indication: SLEEP APNOEA SYNDROME
     Dosage: AT BEDTIME
  7. AMLODIPINE [Concomitant]
     Indication: HYPERTENSION

REACTIONS (3)
  - DRUG INEFFECTIVE [None]
  - MELANOCYTIC NAEVUS [None]
  - HYPOAESTHESIA [None]
